FAERS Safety Report 5106914-1 (Version None)
Quarter: 2006Q3

REPORT INFORMATION
  Report Type: 
  Country: None (occurrence: None)
  Receive Date: 20060913
  Receipt Date: 20060818
  Transmission Date: 20061208
  Serious: Yes (Other)
  Sender: FDA-Public Use
  Company Number: 2006RR-03613

PATIENT
  Age: 2 Year
  Sex: Female

DRUGS (2)
  1. MIDAZOLAM HYDROCHLORIDE [Suspect]
     Indication: SEDATIVE THERAPY
  2. FENTANYL [Suspect]
     Indication: SEDATIVE THERAPY

REACTIONS (5)
  - BINOCULAR EYE MOVEMENT DISORDER [None]
  - CEREBRAL ATROPHY [None]
  - CEREBROVASCULAR INSUFFICIENCY [None]
  - MUSCLE RIGIDITY [None]
  - TREMOR [None]
